FAERS Safety Report 4915447-4 (Version None)
Quarter: 2006Q1

REPORT INFORMATION
  Report Type: 
  Country: None (occurrence: None)
  Receive Date: 20060217
  Receipt Date: 20050930
  Transmission Date: 20060701
  Serious: Yes (Hospitalization, Disabling)
  Sender: FDA-Public Use
  Company Number: US-MERCK-0510USA00270

PATIENT
  Age: 47 Year
  Sex: Female
  Weight: 109 kg

DRUGS (6)
  1. VIOXX [Suspect]
     Indication: RHEUMATOID ARTHRITIS
     Route: 048
     Dates: start: 20010101, end: 20040901
  2. FOLIC ACID [Concomitant]
     Route: 065
  3. METHOTREXATE [Concomitant]
     Indication: PAIN
     Route: 065
     Dates: start: 20010111
  4. PREDNISONE [Concomitant]
     Route: 065
  5. PREMARIN [Concomitant]
     Route: 065
     Dates: start: 19950101, end: 20030101
  6. HEMP [Concomitant]
     Indication: ARTHRALGIA
     Route: 065
     Dates: start: 20000101

REACTIONS (5)
  - ARTHROPATHY [None]
  - BLOOD PRESSURE INCREASED [None]
  - CEREBROVASCULAR ACCIDENT [None]
  - DEPRESSION [None]
  - VERTIGO [None]
